FAERS Safety Report 23205271 (Version 3)
Quarter: 2024Q1

REPORT INFORMATION
  Report Type: Spontaneous
  Country: CA (occurrence: CA)
  Receive Date: 20231120
  Receipt Date: 20240206
  Transmission Date: 20240410
  Serious: No
  Sender: FDA-Public Use
  Company Number: CA-PFIZER INC-202300358108

PATIENT
  Age: 18 Year
  Sex: Male

DRUGS (4)
  1. ABRILADA [Suspect]
     Active Substance: ADALIMUMAB-AFZB
     Indication: Ankylosing spondylitis
     Dosage: 40 MG (EVERY OTHER WEEK)
     Route: 042
     Dates: start: 20230602
  2. ABRILADA [Suspect]
     Active Substance: ADALIMUMAB-AFZB
     Dosage: UNK, EVERY 2 WEEKS
     Dates: start: 20230616
  3. ABRILADA [Suspect]
     Active Substance: ADALIMUMAB-AFZB
     Dosage: 40MG, EVERY 2 WEEKS (AFTER 21 WEEKS)
     Dates: start: 20231108
  4. CELEBREX [Concomitant]
     Active Substance: CELECOXIB
     Dosage: 1 DF

REACTIONS (3)
  - Injection site pain [Unknown]
  - Product dose omission issue [Unknown]
  - Inappropriate schedule of product administration [Unknown]

NARRATIVE: CASE EVENT DATE: 20231108
